FAERS Safety Report 8232205-6 (Version None)
Quarter: 2012Q1

REPORT INFORMATION
  Report Type: 
  Country: None (occurrence: None)
  Receive Date: 20120323
  Receipt Date: 20120316
  Transmission Date: 20120608
  Serious: Yes (Hospitalization)
  Sender: FDA-Public Use
  Company Number: US-ABBOTT-12P-163-0916506-00

PATIENT
  Sex: Female
  Weight: 67.192 kg

DRUGS (20)
  1. LICOPENE [Concomitant]
     Indication: SUPPLEMENTATION THERAPY
  2. VIACTIV VITAMINS [Concomitant]
     Indication: VITAMIN SUPPLEMENTATION
  3. HUMIRA [Suspect]
     Indication: CROHN'S DISEASE
     Dates: start: 20070101
  4. GARLIC [Concomitant]
     Indication: SUPPLEMENTATION THERAPY
  5. VITAMIN D [Concomitant]
     Indication: VITAMIN SUPPLEMENTATION
  6. ACIPHEX [Concomitant]
     Indication: DYSPEPSIA
  7. POTASSIUM [Concomitant]
     Indication: BLOOD POTASSIUM DECREASED
  8. ASCORBIC ACID [Concomitant]
     Indication: VITAMIN SUPPLEMENTATION
  9. MAGNESIUM [Concomitant]
     Indication: MINERAL SUPPLEMENTATION
  10. VESICARE [Concomitant]
     Indication: URINARY INCONTINENCE
  11. AIRBORNE [Concomitant]
     Indication: SUPPLEMENTATION THERAPY
  12. MOVE FREE [Concomitant]
     Indication: ARTHRITIS
  13. CINNAMON [Concomitant]
     Indication: SUPPLEMENTATION THERAPY
  14. GRAPE SEED EXTRACT [Concomitant]
     Indication: SUPPLEMENTATION THERAPY
  15. VIACTIV [Concomitant]
     Indication: VITAMIN SUPPLEMENTATION
  16. FERREX 28 [Concomitant]
     Indication: ANAEMIA
  17. VITAMIN E [Concomitant]
     Indication: VITAMIN SUPPLEMENTATION
  18. CHOLEST OFF 2 [Concomitant]
     Indication: SUPPLEMENTATION THERAPY
  19. LOVAZA [Concomitant]
     Indication: SUPPLEMENTATION THERAPY
  20. FOLIC ACID [Concomitant]
     Indication: VITAMIN SUPPLEMENTATION

REACTIONS (4)
  - ERYTHEMA [None]
  - PYREXIA [None]
  - LOCALISED INFECTION [None]
  - HYPERKERATOSIS [None]
